FAERS Safety Report 9769075 (Version 1)
Quarter: 2013Q4

REPORT INFORMATION
  Report Type: Report from Study
  Country: CA (occurrence: CA)
  Receive Date: 20131218
  Receipt Date: 20131218
  Transmission Date: 20140711
  Serious: Yes (Other)
  Sender: FDA-Public Use
  Company Number: CA-JNJFOC-20131208045

PATIENT
  Age: 37 Year
  Sex: Female
  Weight: 32.66 kg

DRUGS (2)
  1. REMICADE [Suspect]
     Indication: CROHN^S DISEASE
     Route: 042
     Dates: start: 200802
  2. IMURAN [Concomitant]
     Route: 065
     Dates: end: 201310

REACTIONS (1)
  - Migraine [Recovering/Resolving]
